FAERS Safety Report 17270762 (Version 1)
Quarter: 2020Q1

REPORT INFORMATION
  Report Type: Spontaneous
  Country: US (occurrence: US)
  Receive Date: 20200114
  Receipt Date: 20200114
  Transmission Date: 20200409
  Serious: No
  Sender: FDA-Public Use
  Company Number: US-BIOGEN-2019BI00772694

PATIENT
  Age: 58 Year
  Sex: Female

DRUGS (2)
  1. TECFIDERA [Suspect]
     Active Substance: DIMETHYL FUMARATE
     Indication: MULTIPLE SCLEROSIS
     Dosage: STARTING DOSE
     Route: 048
     Dates: start: 20190801
  2. TECFIDERA [Suspect]
     Active Substance: DIMETHYL FUMARATE
     Route: 048

REACTIONS (17)
  - Malaise [Not Recovered/Not Resolved]
  - Flushing [Unknown]
  - Reaction to colouring [Not Recovered/Not Resolved]
  - Blood potassium decreased [Unknown]
  - Nausea [Unknown]
  - Visual acuity reduced [Not Recovered/Not Resolved]
  - Chills [Unknown]
  - Vomiting [Unknown]
  - Burning sensation [Unknown]
  - Hypoaesthesia [Unknown]
  - Dehydration [Unknown]
  - Intentional product use issue [Not Recovered/Not Resolved]
  - Paraesthesia [Unknown]
  - Feeling hot [Unknown]
  - Diarrhoea [Unknown]
  - Drug intolerance [Recovered/Resolved]
  - Gastrointestinal pain [Unknown]

NARRATIVE: CASE EVENT DATE: 20190801
